FAERS Safety Report 13660749 (Version 1)
Quarter: 2017Q2

REPORT INFORMATION
  Report Type: Spontaneous
  Country: US (occurrence: US)
  Receive Date: 20170616
  Receipt Date: 20170616
  Transmission Date: 20170830
  Serious: No
  Sender: FDA-Public Use
  Company Number: US-009507513-1706USA003523

PATIENT

DRUGS (2)
  1. TICE BCG [Suspect]
     Active Substance: BACILLUS CALMETTE-GUERIN SUBSTRAIN TICE LIVE ANTIGEN
     Indication: BLADDER CANCER
     Dosage: 1 DF, UNK
     Route: 043
     Dates: start: 20170606
  2. STERILE DILUENT [Concomitant]
     Active Substance: WATER
     Indication: MEDICATION DILUTION
     Dosage: UNK
     Dates: start: 20170606

REACTIONS (2)
  - No adverse event [Unknown]
  - Incorrect product storage [Unknown]

NARRATIVE: CASE EVENT DATE: 20170606
